FAERS Safety Report 4522464-5 (Version None)
Quarter: 2004Q4

REPORT INFORMATION
  Report Type: 
  Country: None (occurrence: None)
  Receive Date: 20041207
  Receipt Date: 20041122
  Transmission Date: 20050328
  Serious: Yes (Hospitalization)
  Sender: FDA-Public Use
  Company Number: USA040978073

PATIENT
  Age: 83 Year
  Sex: Female

DRUGS (6)
  1. FORTEO [Suspect]
     Indication: OSTEOPOROSIS
     Dosage: 20 UG DAY
     Dates: start: 20040605
  2. DIOVAN [Concomitant]
  3. FUROSEMIDE [Concomitant]
  4. CALTRATE (CALCIUM CARBONATE) [Concomitant]
  5. ZOLOFT [Concomitant]
  6. QUININE [Concomitant]

REACTIONS (3)
  - BACK PAIN [None]
  - PHARMACEUTICAL PRODUCT COMPLAINT [None]
  - SPINAL COMPRESSION FRACTURE [None]
